FAERS Safety Report 14907808 (Version 1)
Quarter: 2018Q2

REPORT INFORMATION
  Report Type: Spontaneous
  Country: US (occurrence: US)
  Receive Date: 20180517
  Receipt Date: 20180517
  Transmission Date: 20180711
  Serious: Yes (Other)
  Sender: FDA-Public Use
  Company Number: US-BEH-2018090724

PATIENT
  Age: 11 Year
  Sex: Female

DRUGS (1)
  1. HIZENTRA [Suspect]
     Active Substance: HUMAN IMMUNOGLOBULIN G
     Indication: HYPOGAMMAGLOBULINAEMIA
     Dosage: 7 G (35 ML), QW
     Route: 058
     Dates: start: 20170919

REACTIONS (2)
  - Headache [Recovered/Resolved]
  - Administration site erythema [Recovered/Resolved]

NARRATIVE: CASE EVENT DATE: 20180510
